FAERS Safety Report 22614187 (Version 1)
Quarter: 2023Q2

REPORT INFORMATION
  Report Type: Spontaneous
  Country: BG (occurrence: BG)
  Receive Date: 20230619
  Receipt Date: 20230619
  Transmission Date: 20230722
  Serious: Yes (Life-Threatening, Other)
  Sender: FDA-Public Use
  Company Number: BG-WOERWAG PHARMA GMBH-23233

PATIENT
  Age: 4 Year
  Sex: Male

DRUGS (3)
  1. AMOXICILLIN\CLAVULANIC ACID [Suspect]
     Active Substance: AMOXICILLIN\CLAVULANIC ACID
     Indication: Pyrexia
     Dosage: UNK (ANTIBIOTIC THERAPY WITH A DURATION OF APPROX. 1 WEEK)
     Route: 065
  2. AZITHROMYCIN [Concomitant]
     Active Substance: AZITHROMYCIN
     Indication: Tonsillitis
     Dosage: UNK (ANTIBIOTIC THERAPY WITH A DURATION OF APPROX. 1 WEEK)
     Route: 065
  3. CEFIXIME [Concomitant]
     Active Substance: CEFIXIME
     Indication: Wheezing
     Dosage: UNK (ANTIBIOTIC THERAPY WITH A DURATION OF APPROX. 1 WEEK)
     Route: 065

REACTIONS (2)
  - Drug ineffective [Recovering/Resolving]
  - Childhood [Recovering/Resolving]
